FAERS Safety Report 17828209 (Version 1)
Quarter: 2020Q2

REPORT INFORMATION
  Report Type: Spontaneous
  Country: US (occurrence: US)
  Receive Date: 20200527
  Receipt Date: 20200527
  Transmission Date: 20200714
  Serious: No
  Sender: FDA-Public Use
  Company Number: US-HIKMA PHARMACEUTICALS USA INC.-US-H14001-20-02250

PATIENT
  Sex: Male

DRUGS (1)
  1. TESTOSTERONE CYPIONATE CIPLA [Suspect]
     Active Substance: TESTOSTERONE CYPIONATE
     Indication: DELAYED PUBERTY
     Route: 030
     Dates: start: 20200426

REACTIONS (2)
  - Multiple use of single-use product [Not Recovered/Not Resolved]
  - Product dose omission [Not Recovered/Not Resolved]
